FAERS Safety Report 13961744 (Version 3)
Quarter: 2017Q4

REPORT INFORMATION
  Report Type: Spontaneous
  Country: JP (occurrence: JP)
  Receive Date: 20170912
  Receipt Date: 20171020
  Transmission Date: 20180320
  Serious: Yes (Hospitalization)
  Sender: FDA-Public Use
  Company Number: JP-OTSUKA-2017_019640

PATIENT
  Age: 7 Decade
  Sex: Male

DRUGS (2)
  1. SAMSCA 30 MG [Suspect]
     Active Substance: TOLVAPTAN
     Indication: CONGENITAL CYSTIC KIDNEY DISEASE
     Dosage: 120MG, DAILY DOSE
     Route: 048
     Dates: end: 20170906
  2. SAMSCA 30 MG [Suspect]
     Active Substance: TOLVAPTAN
     Dosage: 60MG,UNK
     Route: 065

REACTIONS (3)
  - Jaundice [Unknown]
  - Blood bilirubin increased [Recovered/Resolved]
  - Hepatic enzyme increased [Recovered/Resolved]

NARRATIVE: CASE EVENT DATE: 20170906
